FAERS Safety Report 21694730 (Version 1)
Quarter: 2022Q4

REPORT INFORMATION
  Report Type: Other
  Country: None (occurrence: US)
  Receive Date: 20221207
  Receipt Date: 20221207
  Transmission Date: 20230112
  Serious: Yes (Hospitalization, Other)
  Sender: FDA-Public Use
  Company Number: US-Appco Pharma LLC-2135641

PATIENT
  Age: 43 Year
  Sex: Female

DRUGS (2)
  1. FENOFIBRATE [Suspect]
     Active Substance: FENOFIBRATE
     Indication: Hypercholesterolaemia
     Route: 065
  2. ATORVASTATIN CALCIUM [Suspect]
     Active Substance: ATORVASTATIN CALCIUM
     Route: 065

REACTIONS (7)
  - Cholestatic liver injury [Unknown]
  - Hyponatraemia [Unknown]
  - Drug ineffective [Unknown]
  - Bile duct stenosis [Unknown]
  - Cholelithiasis [Unknown]
  - Hyperviscosity syndrome [Unknown]
  - Haematoma [Unknown]
